FAERS Safety Report 6973808-6 (Version None)
Quarter: 2010Q3

REPORT INFORMATION
  Report Type: 
  Country: None (occurrence: None)
  Receive Date: 20100909
  Receipt Date: 20100831
  Transmission Date: 20110219
  Serious: Yes (Hospitalization)
  Sender: FDA-Public Use
  Company Number: A0879985A

PATIENT
  Age: 45 Year
  Sex: Female

DRUGS (2)
  1. AVANDIA [Suspect]
     Dosage: 4MG PER DAY
     Route: 048
     Dates: start: 20050525, end: 20061101
  2. AVANDARYL [Suspect]
     Dosage: 4MG FOUR TIMES PER DAY
     Route: 048
     Dates: start: 20061208, end: 20090701

REACTIONS (1)
  - CEREBROVASCULAR ACCIDENT [None]
